FAERS Safety Report 4811442-4 (Version None)
Quarter: 2005Q4

REPORT INFORMATION
  Report Type: 
  Country: None (occurrence: None)
  Receive Date: 20051026
  Receipt Date: 20051026
  Transmission Date: 20060501
  Serious: Yes (Hospitalization, Other)
  Sender: FDA-Public Use
  Company Number: None

PATIENT
  Sex: Female
  Weight: 105.4613 kg

DRUGS (2)
  1. ALLERGENIC EXTRACT [Suspect]
     Indication: IMMUNISATION
     Dosage: 0.25 SUBCUTANEOUS
     Route: 058
  2. THYROID TAB [Concomitant]

REACTIONS (1)
  - TREATMENT NONCOMPLIANCE [None]
